FAERS Safety Report 9368978 (Version 3)
Quarter: 2013Q4

REPORT INFORMATION
  Report Type: Spontaneous
  Country: GB (occurrence: None)
  Receive Date: 20130621
  Receipt Date: 20131023
  Transmission Date: 20140711
  Serious: Yes (Other)
  Sender: FDA-Public Use
  Company Number: AUR-APL-2013-04988

PATIENT
  Age: 41 Year
  Sex: Male

DRUGS (2)
  1. FLUOXETINE [Suspect]
     Indication: DEPRESSION
     Route: 048
  2. CLOZARIL [Suspect]
     Route: 048
     Dates: start: 20120529

REACTIONS (6)
  - Balance disorder [None]
  - Migraine [None]
  - Dizziness [None]
  - White blood cell count decreased [None]
  - Obsessive-compulsive disorder [None]
  - Neutropenia [None]
